FAERS Safety Report 5387620-5 (Version None)
Quarter: 2007Q3

REPORT INFORMATION
  Report Type: 
  Country: None (occurrence: None)
  Receive Date: 20070712
  Receipt Date: 20070705
  Transmission Date: 20080115
  Serious: Yes (Death)
  Sender: FDA-Public Use
  Company Number: 2007SP004123

PATIENT
  Age: 74 Year
  Sex: Female
  Weight: 53 kg

DRUGS (7)
  1. TEMODAL [Suspect]
     Indication: GLIOBLASTOMA MULTIFORME
     Dosage: 200 MG; QD; PO
     Route: 048
     Dates: start: 20070109, end: 20070113
  2. NAUZELIN [Concomitant]
  3. MAGLAX [Concomitant]
  4. GASTER D [Concomitant]
  5. LASIX [Concomitant]
  6. LIPITOR [Concomitant]
  7. DECADRON [Concomitant]

REACTIONS (4)
  - GAMMA-GLUTAMYLTRANSFERASE INCREASED [None]
  - HEPATIC FUNCTION ABNORMAL [None]
  - PANCYTOPENIA [None]
  - SEPTIC SHOCK [None]
